FAERS Safety Report 8234615-X (Version None)
Quarter: 2012Q1

REPORT INFORMATION
  Report Type: 
  Country: None (occurrence: None)
  Receive Date: 20120321
  Receipt Date: 20120309
  Transmission Date: 20120608
  Serious: Yes (Hospitalization, Other)
  Sender: FDA-Public Use
  Company Number: 2012SP013331

PATIENT
  Age: 56 Year
  Sex: Male

DRUGS (1)
  1. SAPHRIS [Suspect]
     Indication: BIPOLAR I DISORDER
     Dosage: 5 MG;BID
     Dates: start: 20120227, end: 20120302

REACTIONS (2)
  - LIP SWELLING [None]
  - SWOLLEN TONGUE [None]
